FAERS Safety Report 8362470-6 (Version None)
Quarter: 2012Q2

REPORT INFORMATION
  Report Type: 
  Country: None (occurrence: None)
  Receive Date: 20120514
  Receipt Date: 20120514
  Transmission Date: 20120825
  Serious: Yes (Other)
  Sender: FDA-Public Use
  Company Number: None

PATIENT
  Sex: Female
  Weight: 65.7716 kg

DRUGS (1)
  1. WARFARIN SODIUM [Suspect]
     Indication: DEEP VEIN THROMBOSIS
     Dosage: 2.5 MG 5 X WEEKLY PO  : 5 MG 2X WEEKLY PO
     Route: 048
     Dates: start: 20120209, end: 20120305

REACTIONS (3)
  - INTERNATIONAL NORMALISED RATIO INCREASED [None]
  - HAEMATURIA [None]
  - PRODUCT MEASURED POTENCY ISSUE [None]
